FAERS Safety Report 5296506-6 (Version None)
Quarter: 2007Q2

REPORT INFORMATION
  Report Type: 
  Country: None (occurrence: None)
  Receive Date: 20070413
  Receipt Date: 20070330
  Transmission Date: 20071010
  Serious: Yes (Hospitalization)
  Sender: FDA-Public Use
  Company Number: ES-ELI_LILLY_AND_COMPANY-ES200704002504

PATIENT
  Age: 76 Year
  Sex: Female

DRUGS (3)
  1. FORTEO [Suspect]
     Indication: OSTEOPOROSIS
     Dosage: UNK UG, UNK
     Route: 058
     Dates: start: 20061025, end: 20070212
  2. INSULIN [Concomitant]
     Indication: DIABETES MELLITUS
  3. DIURETICS [Concomitant]

REACTIONS (3)
  - INFECTION [None]
  - NECROSIS [None]
  - PAIN [None]
